FAERS Safety Report 9307669 (Version 2)
Quarter: 2013Q2

REPORT INFORMATION
  Report Type: Report from Study
  Country: US (occurrence: US)
  Receive Date: 20130524
  Receipt Date: 20130619
  Transmission Date: 20140414
  Serious: Yes (Hospitalization, Other)
  Sender: FDA-Public Use
  Company Number: US-NAPPMUNDI-USA-2013-0102583

PATIENT
  Age: 50 Year
  Sex: Female
  Weight: 43.08 kg

DRUGS (4)
  1. OXYCONTIN (NDA 22-272) [Suspect]
     Indication: POST LAMINECTOMY SYNDROME
     Dosage: 60 MG, Q8H
     Route: 048
     Dates: start: 20120725, end: 20130523
  2. PERCOCET /00867901/ [Suspect]
     Indication: POST LAMINECTOMY SYNDROME
     Dosage: 1 TABLET, QID PRN
     Route: 048
     Dates: start: 20120201, end: 20130523
  3. VOLTAREN EMULGEL [Concomitant]
     Indication: PAIN
     Dosage: UNK, QID
     Route: 062
  4. MEGACE [Concomitant]
     Indication: DECREASED APPETITE
     Dosage: 40 MG, QID
     Route: 048

REACTIONS (5)
  - Overdose [Recovered/Resolved]
  - Pneumonia [Not Recovered/Not Resolved]
  - Drug detoxification [Unknown]
  - Intentional drug misuse [Unknown]
  - Malaise [Not Recovered/Not Resolved]
